FAERS Safety Report 10723110 (Version 1)
Quarter: 2015Q1

REPORT INFORMATION
  Report Type: Spontaneous
  Country: DE (occurrence: DE)
  Receive Date: 20150120
  Receipt Date: 20150120
  Transmission Date: 20150721
  Serious: Yes (Other)
  Sender: FDA-Public Use
  Company Number: GXKR2015DE000590

PATIENT
  Age: 52 Year
  Sex: Female

DRUGS (6)
  1. VALSARTAN 1 A PHARMA [Suspect]
     Active Substance: VALSARTAN
     Indication: HYPERTENSION
     Dosage: 80 MG, QD
     Route: 048
  2. NOVOTHYRAL [Concomitant]
     Active Substance: LEVOTHYROXINE SODIUM\LIOTHYRONINE SODIUM
  3. ESTRIFAM [Concomitant]
     Active Substance: ESTRADIOL
  4. VENTOLAIR [Concomitant]
     Active Substance: BECLOMETHASONE DIPROPIONATE
  5. VERAPAMIL [Concomitant]
     Active Substance: VERAPAMIL HYDROCHLORIDE
  6. FOLSAEURE [Concomitant]
     Active Substance: FOLIC ACID

REACTIONS (2)
  - VIIth nerve paralysis [Unknown]
  - Facial spasm [Unknown]
